FAERS Safety Report 19141023 (Version 29)
Quarter: 2022Q1

REPORT INFORMATION
  Report Type: Spontaneous
  Country: GB (occurrence: GB)
  Receive Date: 20210415
  Receipt Date: 20220315
  Transmission Date: 20220423
  Serious: Yes (Hospitalization, Disabling, Other)
  Sender: FDA-Public Use
  Company Number: None

PATIENT
  Sex: Male

DRUGS (17)
  1. CITALOPRAM HYDROBROMIDE [Suspect]
     Active Substance: CITALOPRAM HYDROBROMIDE
     Indication: Antidepressant therapy
     Dosage: 10 MG, QD
     Route: 048
     Dates: start: 20150925
  2. CITALOPRAM HYDROBROMIDE [Suspect]
     Active Substance: CITALOPRAM HYDROBROMIDE
     Dosage: 10 MG, QD
     Route: 048
     Dates: start: 201507, end: 201509
  3. ESCITALOPRAM OXALATE [Suspect]
     Active Substance: ESCITALOPRAM OXALATE
     Indication: Antidepressant therapy
     Dosage: 10 MG, QD
     Dates: end: 201509
  4. ESCITALOPRAM OXALATE [Suspect]
     Active Substance: ESCITALOPRAM OXALATE
     Dosage: 10 MG, DAILY
     Route: 048
     Dates: start: 201507, end: 201509
  5. MIRTAZAPINE [Suspect]
     Active Substance: MIRTAZAPINE
     Indication: Antidepressant therapy
     Dosage: ACTUAL: 7.5MG - UPTITRATED TO 45MG DAILY THEN REDUCED DOWN TO STOP
     Route: 048
     Dates: start: 2014, end: 2015
  6. MIRTAZAPINE [Suspect]
     Active Substance: MIRTAZAPINE
     Dosage: ACTUAL: 7.5 MG UPTITRATED TO 45 MG DAILY THE REDUCED DOWN TO STOP
     Route: 048
     Dates: start: 2014, end: 2015
  7. RISPERIDONE [Suspect]
     Active Substance: RISPERIDONE
     Indication: Ill-defined disorder
     Dosage: UNK
     Route: 048
  8. SERTRALINE [Suspect]
     Active Substance: SERTRALINE HYDROCHLORIDE
     Indication: Antidepressant therapy
     Dosage: 100 MG
     Route: 048
     Dates: start: 2014
  9. SERTRALINE [Suspect]
     Active Substance: SERTRALINE HYDROCHLORIDE
     Dosage: ACTUAL: 50 MG INITIALLY THEN 100 MG
     Route: 048
     Dates: start: 2014
  10. TEMAZEPAM [Suspect]
     Active Substance: TEMAZEPAM
     Indication: Poor quality sleep
     Dosage: ACUTAL: 50 MILLIGRAM, UNK, 50MG INITAILLY INCREASED TO 100MG DAILY THEN REDUCED TO 50MG BEFORE STOPP
     Route: 048
  11. TRAZODONE [Suspect]
     Active Substance: TRAZODONE HYDROCHLORIDE
     Indication: Antidepressant therapy
     Dosage: ACTUAL: INCREASED TO 100 MG DAILY
     Route: 048
     Dates: start: 2015, end: 201507
  12. TRAZODONE [Suspect]
     Active Substance: TRAZODONE HYDROCHLORIDE
     Indication: Poor quality sleep
     Dosage: ACTUAL: 50MG INITAILLY
     Route: 048
     Dates: start: 2015, end: 201507
  13. TRAZODONE [Suspect]
     Active Substance: TRAZODONE HYDROCHLORIDE
     Dosage: ACTUAL: 50 MG, QD (REDUCED TO 50MG BEFORE STOPPING)
     Dates: start: 2015, end: 201507
  14. TRAZODONE [Suspect]
     Active Substance: TRAZODONE HYDROCHLORIDE
     Dosage: 100 MG
     Route: 048
  15. TRAZODONE [Suspect]
     Active Substance: TRAZODONE HYDROCHLORIDE
     Dosage: ACTUAL: 100 MG, QD (INCREASED TO 100MG DAILY)
     Route: 048
     Dates: start: 2015, end: 201507
  16. TRAZODONE [Suspect]
     Active Substance: TRAZODONE HYDROCHLORIDE
     Dosage: ACTUAL: 50MG INITAILLY INCREASED TO 100MG DAILY THEN REDUCED TO 50MG BEFORE STOPPING
     Route: 048
     Dates: start: 2015, end: 201507
  17. CITALOPRAM [Suspect]
     Active Substance: CITALOPRAM HYDROBROMIDE
     Indication: Product used for unknown indication
     Dosage: 10 MG (INITIAL)
     Route: 048
     Dates: start: 201507, end: 201509

REACTIONS (25)
  - Homicidal ideation [Unknown]
  - Intrusive thoughts [Unknown]
  - Sedation [Unknown]
  - Tachyphrenia [Unknown]
  - Off label use [Unknown]
  - Anger [Unknown]
  - Headache [Unknown]
  - Mood swings [Unknown]
  - Feeling abnormal [Unknown]
  - Amnesia [Unknown]
  - Irritability [Unknown]
  - Paranoia [Unknown]
  - Psychotic disorder [Unknown]
  - Agitation [Unknown]
  - Insomnia [Unknown]
  - Hallucination, auditory [Unknown]
  - Hallucination, visual [Unknown]
  - Suicide attempt [Unknown]
  - Somnolence [Unknown]
  - Loss of libido [Unknown]
  - Nausea [Unknown]
  - Suicidal ideation [Unknown]
  - Confusional state [Unknown]
  - Withdrawal syndrome [Unknown]
  - Aggression [Unknown]
